FAERS Safety Report 4916834-0 (Version None)
Quarter: 2006Q1

REPORT INFORMATION
  Report Type: 
  Country: None (occurrence: None)
  Receive Date: 20060216
  Receipt Date: 20060216
  Transmission Date: 20060701
  Serious: Yes (Life-Threatening, Hospitalization)
  Sender: FDA-Public Use
  Company Number: None

PATIENT
  Sex: Male

DRUGS (10)
  1. GATIFLOXACIN [Suspect]
     Indication: HAEMATURIA
     Dosage: DAILY PO
     Route: 048
     Dates: start: 20051021, end: 20051025
  2. ASPIRIN [Concomitant]
  3. COLESTIPOL HCL [Concomitant]
  4. DIAZEPAM [Concomitant]
  5. HYDROXYZINE [Concomitant]
  6. METOPROLOL [Concomitant]
  7. NIACIN SA [Concomitant]
  8. NITROGLYCERIN [Concomitant]
  9. OMEPRAZOLE [Concomitant]
  10. TERAZOSIN [Concomitant]

REACTIONS (1)
  - THROMBOCYTOPENIA [None]
